FAERS Safety Report 4421146-8 (Version None)
Quarter: 2004Q3

REPORT INFORMATION
  Report Type: 
  Country: None (occurrence: None)
  Receive Date: 20040804
  Receipt Date: 20040722
  Transmission Date: 20050211
  Serious: Yes (Hospitalization)
  Sender: FDA-Public Use
  Company Number: 2004050411

PATIENT
  Age: 62 Year
  Sex: Male
  Weight: 89 kg

DRUGS (6)
  1. NORVASC [Suspect]
     Indication: HYPERTENSION
     Dosage: 5 MG (5 MG 1 IN 1 D) ORAL
     Route: 048
  2. CLOPIDOGREL BISULFATE [Suspect]
     Indication: THROMBOSIS PROPHYLAXIS
     Dosage: 75 MG (75 MG 1 IN 1 D), ORAL
     Route: 048
  3. METOPROLOL SUCCINATE [Concomitant]
  4. BENAZEPRIL HCL [Concomitant]
  5. ISOSORBIDE DINITRATE [Concomitant]
  6. BACLOFEN [Concomitant]

REACTIONS (2)
  - HAEMOPTYSIS [None]
  - HAEMORRHAGIC DIATHESIS [None]
